FAERS Safety Report 6905175-8 (Version None)
Quarter: 2010Q3

REPORT INFORMATION
  Report Type: 
  Country: None (occurrence: None)
  Receive Date: 20100804
  Receipt Date: 20091124
  Transmission Date: 20110219
  Serious: Yes (Other)
  Sender: FDA-Public Use
  Company Number: US-PFIZER INC-2008036085

PATIENT
  Sex: Female
  Weight: 76.2 kg

DRUGS (9)
  1. LYRICA [Interacting]
     Indication: SLEEP DISORDER
     Dosage: 225 MG, 2X/DAY
     Route: 048
     Dates: start: 20071211, end: 20080508
  2. LYRICA [Interacting]
     Indication: FIBROMYALGIA
  3. AMBIEN [Interacting]
     Indication: SLEEP DISORDER
     Dosage: 5 MG, 1X/DAY
     Route: 048
     Dates: start: 20080202, end: 20080401
  4. RESTORIL [Suspect]
     Indication: SLEEP DISORDER
     Dates: start: 20080101
  5. TIZANIDINE HCL [Concomitant]
     Dates: start: 20071211
  6. CITALOPRAM [Concomitant]
     Route: 048
     Dates: start: 20080205
  7. TEMAZEPAM [Concomitant]
     Route: 048
     Dates: start: 20080401
  8. TRAMADOL HYDROCHLORIDE [Concomitant]
     Dosage: EVERY 8 HOURS AS NEEDED
     Route: 048
     Dates: start: 20080429
  9. NEURONTIN [Concomitant]
     Dates: start: 20080508

REACTIONS (13)
  - ARTHRALGIA [None]
  - DIPLOPIA [None]
  - DRUG EFFECT DECREASED [None]
  - DRUG INTERACTION [None]
  - DYSARTHRIA [None]
  - DYSPEPSIA [None]
  - FEELING ABNORMAL [None]
  - INCREASED APPETITE [None]
  - OEDEMA PERIPHERAL [None]
  - PAIN IN EXTREMITY [None]
  - VISION BLURRED [None]
  - VISUAL IMPAIRMENT [None]
  - WEIGHT INCREASED [None]
